FAERS Safety Report 25619418 (Version 2)
Quarter: 2025Q4

REPORT INFORMATION
  Report Type: Report from Study
  Country: US (occurrence: US)
  Receive Date: 20250729
  Receipt Date: 20251030
  Transmission Date: 20260118
  Serious: Yes (Other)
  Sender: ABBVIE
  Company Number: US-ABBVIE-6390177

PATIENT
  Age: 42 Year
  Sex: Male

DRUGS (1)
  1. SKYRIZI [Suspect]
     Active Substance: RISANKIZUMAB-RZAA
     Indication: Crohn^s disease
     Route: 058
     Dates: start: 20240613, end: 202412

REACTIONS (6)
  - Hip arthroplasty [Recovered/Resolved]
  - Crohn^s disease [Unknown]
  - Fall [Not Recovered/Not Resolved]
  - Skin laceration [Not Recovered/Not Resolved]
  - Hypoaesthesia [Unknown]
  - Spinal nerve stimulator implantation [Recovered/Resolved]

NARRATIVE: CASE EVENT DATE: 20250202
